FAERS Safety Report 10931784 (Version 15)
Quarter: 2019Q3

REPORT INFORMATION
  Report Type: Spontaneous
  Country: BE (occurrence: BE)
  Receive Date: 20150319
  Receipt Date: 20190822
  Transmission Date: 20191004
  Serious: Yes (Death, Hospitalization, Other)
  Sender: FDA-Public Use
  Company Number: PHHY2015BE028421

PATIENT
  Age: 67 Year
  Sex: Female

DRUGS (6)
  1. AZATHIOPRINE. [Suspect]
     Active Substance: AZATHIOPRINE
     Indication: IMMUNOSUPPRESSION
  2. ASPIRIN. [Suspect]
     Active Substance: ASPIRIN
     Indication: INTERMITTENT CLAUDICATION
     Dosage: UNK
     Route: 065
     Dates: start: 2005
  3. DICLOFENAC [Suspect]
     Active Substance: DICLOFENAC
     Indication: ARTHRALGIA
     Dosage: 50 MG, TID
     Route: 065
     Dates: start: 2012
  4. AZATHIOPRINE. [Suspect]
     Active Substance: AZATHIOPRINE
     Indication: MULTIVISCERAL TRANSPLANTATION
     Dosage: 25 MG, QD
     Route: 065
     Dates: start: 2000
  5. TACROLIMUS. [Suspect]
     Active Substance: TACROLIMUS
     Indication: IMMUNOSUPPRESSION
  6. TACROLIMUS. [Suspect]
     Active Substance: TACROLIMUS
     Indication: MULTIVISCERAL TRANSPLANTATION
     Dosage: 3 UG, UNK
     Route: 065

REACTIONS (15)
  - Graft loss [Fatal]
  - Death [Fatal]
  - Contraindicated product administered [Unknown]
  - Complications of intestinal transplant [Fatal]
  - Graft thrombosis [Fatal]
  - Arthralgia [Unknown]
  - Renal impairment [Fatal]
  - Blood creatinine increased [Fatal]
  - Apoptosis [Fatal]
  - Biopsy intestine abnormal [Fatal]
  - Shock [Fatal]
  - Abscess intestinal [Fatal]
  - Gastrointestinal wall thickening [Fatal]
  - Gastrointestinal ulcer [Fatal]
  - Transplant rejection [Fatal]

NARRATIVE: CASE EVENT DATE: 2012
